FAERS Safety Report 13721456 (Version 1)
Quarter: 2017Q3

REPORT INFORMATION
  Report Type: Spontaneous
  Country: US (occurrence: US)
  Receive Date: 20170706
  Receipt Date: 20170706
  Transmission Date: 20171127
  Serious: Yes (Other)
  Sender: FDA-Public Use
  Company Number: None

PATIENT
  Age: 41 Year
  Sex: Male
  Weight: 94.5 kg

DRUGS (5)
  1. EFFEXOR XR [Concomitant]
     Active Substance: VENLAFAXINE HYDROCHLORIDE
  2. DIPHENHYDRAMINE HCL [Concomitant]
     Active Substance: DIPHENHYDRAMINE HYDROCHLORIDE
  3. METHYLPREDNISOLONE TABS, USP 4MG [Suspect]
     Active Substance: METHYLPREDNISOLONE
     Indication: NERVE COMPRESSION
     Dosage: 21 TABLET(S); 6/DAY 1,5/2, 4/3, ORAL
     Route: 048
     Dates: start: 20170703, end: 20170704
  4. METHYLPREDNISOLONE TABS, USP 4MG [Suspect]
     Active Substance: METHYLPREDNISOLONE
     Indication: INTERVERTEBRAL DISC PROTRUSION
     Dosage: 21 TABLET(S); 6/DAY 1,5/2, 4/3, ORAL
     Route: 048
     Dates: start: 20170703, end: 20170704
  5. METHYLPREDNISOLONE TABS, USP 4MG [Suspect]
     Active Substance: METHYLPREDNISOLONE
     Indication: BACK PAIN
     Dosage: 21 TABLET(S); 6/DAY 1,5/2, 4/3, ORAL
     Route: 048
     Dates: start: 20170703, end: 20170704

REACTIONS (3)
  - Panic attack [None]
  - Palpitations [None]
  - Anxiety [None]

NARRATIVE: CASE EVENT DATE: 20170704
